FAERS Safety Report 23326149 (Version 1)
Quarter: 2023Q4

REPORT INFORMATION
  Report Type: Spontaneous
  Country: US (occurrence: None)
  Receive Date: 20231220
  Receipt Date: 20231220
  Transmission Date: 20240110
  Serious: Yes (Hospitalization, Other)
  Sender: FDA-Public Use
  Company Number: None

PATIENT
  Sex: Female

DRUGS (3)
  1. HYQVIA [Suspect]
     Active Substance: HUMAN IMMUNOGLOBULIN G\HYALURONIDASE (HUMAN RECOMBINANT)
     Indication: Immunodeficiency common variable
     Dosage: 30GM EVERY 4 WEEKS SUBCUTANEOUSLY
     Route: 058
     Dates: start: 201611
  2. HYQVIA [Suspect]
     Active Substance: HUMAN IMMUNOGLOBULIN G\HYALURONIDASE (HUMAN RECOMBINANT)
     Indication: Immunodeficiency common variable
     Dosage: 5GM EVERY 4 WEEKS SUBCUTANEOUSLY?
     Route: 058
     Dates: start: 201611
  3. EPINEPHRINE AUTO-INJ [Concomitant]

REACTIONS (2)
  - COVID-19 [None]
  - Oxygen saturation decreased [None]
